FAERS Safety Report 16372819 (Version 1)
Quarter: 2019Q2

REPORT INFORMATION
  Report Type: Spontaneous
  Country: US (occurrence: US)
  Receive Date: 20190424
  Receipt Date: 20190424
  Transmission Date: 20190711
  Serious: Yes (Hospitalization)
  Sender: FDA-Public Use
  Company Number: None

PATIENT
  Age: 70 Year
  Sex: Male

DRUGS (19)
  1. WARFARIN [Concomitant]
     Active Substance: WARFARIN
  2. GLIPIZIDE. [Concomitant]
     Active Substance: GLIPIZIDE
  3. TREPROSTINIL DIOLAMINE [Concomitant]
     Active Substance: TREPROSTINIL DIOLAMINE
  4. TRIAMCINOLONE TOP CREAM [Concomitant]
  5. PRAVASTATIN. [Concomitant]
     Active Substance: PRAVASTATIN
  6. PERIDEX [Concomitant]
     Active Substance: CHLORHEXIDINE GLUCONATE
  7. LORATADINE. [Concomitant]
     Active Substance: LORATADINE
  8. PANTOPRAZOLE [Concomitant]
     Active Substance: PANTOPRAZOLE
  9. MELATONIN [Concomitant]
     Active Substance: MELATONIN
  10. DOCUSATE SODIUM. [Concomitant]
     Active Substance: DOCUSATE SODIUM
  11. DIPHENHYDRAMINE. [Concomitant]
     Active Substance: DIPHENHYDRAMINE
  12. IBUPROPION [Concomitant]
  13. LETAIRIS [Suspect]
     Active Substance: AMBRISENTAN
     Indication: PULMONARY ARTERIAL HYPERTENSION
     Route: 048
     Dates: start: 201110
  14. ASPIRIN. [Concomitant]
     Active Substance: ASPIRIN
  15. ALLOPURINOL. [Concomitant]
     Active Substance: ALLOPURINOL
  16. SILDENAFIL. [Concomitant]
     Active Substance: SILDENAFIL
  17. FLONASE [Concomitant]
     Active Substance: FLUTICASONE PROPIONATE
  18. PREDNISONE. [Concomitant]
     Active Substance: PREDNISONE
  19. LORATADINE. [Concomitant]
     Active Substance: LORATADINE

REACTIONS (2)
  - Surgery [None]
  - Unevaluable event [None]

NARRATIVE: CASE EVENT DATE: 20190408
